FAERS Safety Report 15001894 (Version 8)
Quarter: 2018Q3

REPORT INFORMATION
  Report Type: Spontaneous
  Country: GB (occurrence: GB)
  Receive Date: 20180612
  Receipt Date: 20180829
  Transmission Date: 20181010
  Serious: Yes (Disabling, Other)
  Sender: FDA-Public Use
  Company Number: GB-TEVA-2018-GB-888365

PATIENT
  Age: 60 Year
  Sex: Female
  Weight: 67 kg

DRUGS (5)
  1. LANSOPRAZOLE. [Suspect]
     Active Substance: LANSOPRAZOLE
     Indication: ABDOMINAL DISCOMFORT
     Dosage: 30 MILLIGRAM DAILY;
     Route: 048
     Dates: start: 20180121, end: 20180131
  2. NAPROXEN. [Suspect]
     Active Substance: NAPROXEN
     Route: 016
  3. NAPROXEN. [Concomitant]
     Active Substance: NAPROXEN
     Dosage: TAKEN AS AND WHEN REQUIRED FOR SIX MONTHS
  4. NAPROXEN. [Suspect]
     Active Substance: NAPROXEN
     Indication: RHEUMATOID ARTHRITIS
     Route: 065
  5. LANSOPRAZOLE. [Suspect]
     Active Substance: LANSOPRAZOLE
     Indication: PROPHYLAXIS AGAINST GASTROINTESTINAL ULCER
     Dosage: 30 MILLIGRAM DAILY;
     Route: 048
     Dates: start: 20180121, end: 20180131

REACTIONS (12)
  - Muscle disorder [Unknown]
  - Erythema [Recovered/Resolved with Sequelae]
  - Pain [Recovered/Resolved]
  - Arthralgia [Recovered/Resolved]
  - Urticaria [Recovered/Resolved]
  - Abdominal discomfort [Recovered/Resolved]
  - Off label use [Unknown]
  - Erythema [Unknown]
  - Muscular weakness [Recovered/Resolved]
  - Dyskinesia [Recovered/Resolved with Sequelae]
  - Mobility decreased [Recovered/Resolved with Sequelae]
  - Muscle disorder [Recovered/Resolved with Sequelae]

NARRATIVE: CASE EVENT DATE: 2018
